FAERS Safety Report 19611512 (Version 1)
Quarter: 2021Q3

REPORT INFORMATION
  Report Type: Spontaneous
  Country: US (occurrence: US)
  Receive Date: 20210726
  Receipt Date: 20210726
  Transmission Date: 20211014
  Serious: Yes (Hospitalization)
  Sender: FDA-Public Use
  Company Number: US-TEVA-2021-US-1935586

PATIENT
  Age: 53 Year
  Sex: Female

DRUGS (1)
  1. COPAXONE [Suspect]
     Active Substance: GLATIRAMER ACETATE
     Route: 065

REACTIONS (7)
  - Multiple sclerosis relapse [Unknown]
  - Endometrial disorder [Unknown]
  - Cystitis [Unknown]
  - Ulcer [Unknown]
  - Drug ineffective [Unknown]
  - Fatigue [Unknown]
  - Kidney infection [Unknown]
